FAERS Safety Report 15044557 (Version 2)
Quarter: 2018Q3

REPORT INFORMATION
  Report Type: Spontaneous
  Country: US (occurrence: US)
  Receive Date: 20180621
  Receipt Date: 20180713
  Transmission Date: 20181010
  Serious: No
  Sender: FDA-Public Use
  Company Number: US-PROCTER_AND_GAMBLE-GS18071935

PATIENT
  Sex: Female
  Weight: 85.71 kg

DRUGS (1)
  1. METAMUCIL THERAPY FOR REGULARITY [Suspect]
     Active Substance: PSYLLIUM HUSK
     Indication: CONSTIPATION
     Dosage: 1 TSP, DAILY
     Route: 048

REACTIONS (2)
  - Drug ineffective [Unknown]
  - Gastrointestinal obstruction [Unknown]
